FAERS Safety Report 5155878-3 (Version None)
Quarter: 2006Q4

REPORT INFORMATION
  Report Type: 
  Country: None (occurrence: None)
  Receive Date: 20061122
  Receipt Date: 20061115
  Transmission Date: 20070319
  Serious: Yes (Other)
  Sender: FDA-Public Use
  Company Number: US-JNJFOC-20061104670

PATIENT
  Sex: Female
  Weight: 81.65 kg

DRUGS (1)
  1. TOPAMAX [Suspect]
     Indication: MIGRAINE PROPHYLAXIS
     Route: 048

REACTIONS (4)
  - BLOOD CALCIUM INCREASED [None]
  - CALCULUS URETERIC [None]
  - NEPHROLITHIASIS [None]
  - PARATHYROIDECTOMY [None]
